FAERS Safety Report 15452001 (Version 1)
Quarter: 2018Q3

REPORT INFORMATION
  Report Type: Spontaneous
  Country: US (occurrence: US)
  Receive Date: 20180927
  Receipt Date: 20180927
  Transmission Date: 20181010
  Serious: No
  Sender: FDA-Public Use
  Company Number: None

PATIENT
  Age: 65 Year
  Sex: Male
  Weight: 83.92 kg

DRUGS (6)
  1. BUDESONIDE. [Suspect]
     Active Substance: BUDESONIDE
     Indication: EOSINOPHILIC OESOPHAGITIS
     Route: 048
     Dates: start: 20180703, end: 20180831
  2. K2+D3 [Concomitant]
  3. XANAX [Concomitant]
     Active Substance: ALPRAZOLAM
  4. VITAMIN C [Concomitant]
     Active Substance: ASCORBIC ACID
  5. MAGNESIUM CITRATE. [Concomitant]
     Active Substance: MAGNESIUM CITRATE
  6. LIPOSOMAL [Concomitant]
     Active Substance: AMPHOTERICIN B

REACTIONS (1)
  - Tendon rupture [None]
